FAERS Safety Report 6301260-2 (Version None)
Quarter: 2009Q3

REPORT INFORMATION
  Report Type: 
  Country: None (occurrence: None)
  Receive Date: 20090806
  Receipt Date: 20090806
  Transmission Date: 20100115
  Serious: Yes (Hospitalization, Other)
  Sender: FDA-Public Use
  Company Number: None

PATIENT
  Age: 85 Year
  Sex: Male
  Weight: 86.1834 kg

DRUGS (2)
  1. AVINZA [Suspect]
     Indication: PAIN
     Dosage: 1 CAP AM PO
     Route: 048
     Dates: start: 20090708, end: 20090715
  2. TAPENTADOL HYDROCHLORIDE [Suspect]
     Indication: PAIN
     Dosage: 1 TABLET Q 6HRS PO
     Route: 048
     Dates: start: 20090708, end: 20090715

REACTIONS (5)
  - CONFUSIONAL STATE [None]
  - DISORIENTATION [None]
  - HALLUCINATION [None]
  - MENTAL DISORDER [None]
  - SOMNOLENCE [None]
